FAERS Safety Report 5279859-4 (Version None)
Quarter: 2007Q1

REPORT INFORMATION
  Report Type: 
  Country: None (occurrence: None)
  Receive Date: 20070323
  Receipt Date: 20070323
  Transmission Date: 20070707
  Serious: Yes (Hospitalization)
  Sender: FDA-Public Use
  Company Number: None

PATIENT
  Sex: Female
  Weight: 122.9248 kg

DRUGS (4)
  1. OXALIPLATIN [Suspect]
     Indication: COLON CANCER
     Dosage: 85 MG/M2 Q 2 WK IV
     Route: 042
     Dates: start: 20061204, end: 20070227
  2. LEUCOVORIN CALCIUM [Suspect]
     Indication: COLON CANCER
     Dosage: 400 MG/M2 Q 2 WK IV
     Route: 042
     Dates: start: 20061204, end: 20070227
  3. 5FU (FOLFOX) [Suspect]
     Indication: COLON CANCER
     Dosage: 400 MG/M2 Q 2 WK IV
     Route: 042
     Dates: start: 20061204, end: 20070227
  4. AVASTIN [Suspect]
     Indication: COLON CANCER
     Dosage: 5 MG/KG Q 2 WK IV
     Route: 042
     Dates: start: 20061218, end: 20070227

REACTIONS (2)
  - ARTHRITIS INFECTIVE [None]
  - DEVICE RELATED INFECTION [None]
